FAERS Safety Report 9089911 (Version 1)
Quarter: 2013Q1

REPORT INFORMATION
  Report Type: Report from Study
  Country: US (occurrence: US)
  Receive Date: 20130131
  Receipt Date: 20130131
  Transmission Date: 20140127
  Serious: No
  Sender: FDA-Public Use
  Company Number: US-ABBOTT-12P-163-0995025-00

PATIENT
  Age: 68 Year
  Sex: Female

DRUGS (9)
  1. HUMIRA [Suspect]
     Indication: CROHN^S DISEASE
     Dosage: LOADING DOSE
     Route: 058
     Dates: start: 20121001, end: 20121001
  2. HUMIRA [Suspect]
     Route: 058
     Dates: start: 20121015, end: 20121015
  3. HUMIRA [Suspect]
     Route: 058
  4. CALCIUM [Concomitant]
     Indication: PRODUCT USED FOR UNKNOWN INDICATION
  5. VITAMIN B12 [Concomitant]
     Indication: PRODUCT USED FOR UNKNOWN INDICATION
  6. ONE A DAY [Concomitant]
     Indication: PRODUCT USED FOR UNKNOWN INDICATION
  7. PREMARIN [Concomitant]
     Indication: PRODUCT USED FOR UNKNOWN INDICATION
  8. LOMOTIL [Concomitant]
     Indication: DIARRHOEA
  9. PROTONIX [Concomitant]
     Indication: PRODUCT USED FOR UNKNOWN INDICATION

REACTIONS (6)
  - Change of bowel habit [Unknown]
  - Injection site pain [Recovered/Resolved]
  - Headache [Unknown]
  - Device malfunction [Unknown]
  - Oropharyngeal pain [Recovered/Resolved]
  - Aphonia [Recovered/Resolved]
